FAERS Safety Report 13783955 (Version 2)
Quarter: 2017Q3

REPORT INFORMATION
  Report Type: Spontaneous
  Country: FR (occurrence: FR)
  Receive Date: 20170724
  Receipt Date: 20170905
  Transmission Date: 20171127
  Serious: Yes (Hospitalization)
  Sender: FDA-Public Use
  Company Number: FR-PFIZER INC-2017317029

PATIENT
  Age: 58 Year
  Sex: Female
  Weight: 102 kg

DRUGS (2)
  1. NEURONTIN [Suspect]
     Active Substance: GABAPENTIN
     Indication: ORAL PAIN
     Dosage: 600 MG, 3X/DAY
     Route: 048
     Dates: start: 20170615, end: 20170720
  2. RIVOTRIL [Concomitant]
     Active Substance: CLONAZEPAM
     Indication: ORAL PAIN
     Dosage: 9 GTT, IN THE EVENING
     Dates: start: 20170615

REACTIONS (1)
  - Mania [Not Recovered/Not Resolved]

NARRATIVE: CASE EVENT DATE: 20170718
